FAERS Safety Report 6043702-6 (Version None)
Quarter: 2009Q1

REPORT INFORMATION
  Report Type: 
  Country: None (occurrence: None)
  Receive Date: 20090120
  Receipt Date: 20090106
  Transmission Date: 20090719
  Serious: Yes (Other)
  Sender: FDA-Public Use
  Company Number: PHEH2009US00785

PATIENT
  Sex: Female

DRUGS (2)
  1. GLEEVEC [Suspect]
     Indication: CHRONIC MYELOID LEUKAEMIA
     Dosage: UNK
     Dates: start: 20070501
  2. AROMASIN [Concomitant]
     Indication: BREAST CANCER

REACTIONS (6)
  - ASTHENIA [None]
  - BREAST CANCER [None]
  - DIARRHOEA [None]
  - FATIGUE [None]
  - MUSCLE SPASMS [None]
  - VOMITING [None]
